FAERS Safety Report 4712338-9 (Version None)
Quarter: 2005Q3

REPORT INFORMATION
  Report Type: 
  Country: None (occurrence: None)
  Receive Date: 20050711
  Receipt Date: 20050630
  Transmission Date: 20060218
  Serious: Yes (Hospitalization)
  Sender: FDA-Public Use
  Company Number: 2005094400

PATIENT
  Age: 62 Year
  Sex: Male

DRUGS (6)
  1. LIPITOR [Suspect]
     Indication: BLOOD CHOLESTEROL INCREASED
     Dosage: ORAL
     Route: 048
  2. LISINOPRIL [Suspect]
     Indication: HYPERTENSION
  3. VERAPAMIL HYDROCHLORIDE [Suspect]
     Indication: HYPERTENSION
  4. ALL OTHER NON-THERAPEUTIC PRODUCTS (ALL OTHER NON-THERAPEUTIC PRODUCTS [Suspect]
     Indication: DENTURE WEARER
     Dosage: OTHER
     Route: 050
     Dates: start: 20030101
  5. PRAVACHOL [Suspect]
     Indication: BLOOD CHOLESTEROL INCREASED
  6. ACETYLSALICYLIC ACID SRT [Concomitant]

REACTIONS (2)
  - PHARYNGEAL OEDEMA [None]
  - SWOLLEN TONGUE [None]
